FAERS Safety Report 7421019-2 (Version None)
Quarter: 2011Q2

REPORT INFORMATION
  Report Type: 
  Country: None (occurrence: None)
  Receive Date: 20110418
  Receipt Date: 20110406
  Transmission Date: 20111010
  Serious: Yes (Other)
  Sender: FDA-Public Use
  Company Number: US-ROCHE-769879

PATIENT

DRUGS (1)
  1. CELLCEPT [Suspect]
     Route: 048

REACTIONS (3)
  - NERVE BLOCK [None]
  - SHOULDER OPERATION [None]
  - DYSPHAGIA [None]
